FAERS Safety Report 6427782-1 (Version None)
Quarter: 2009Q4

REPORT INFORMATION
  Report Type: 
  Country: None (occurrence: None)
  Receive Date: 20091030
  Receipt Date: 20091016
  Transmission Date: 20100525
  Serious: Yes (Death)
  Sender: FDA-Public Use
  Company Number: 2009AC000257

PATIENT
  Sex: Male

DRUGS (14)
  1. DIGOXIN [Suspect]
     Dosage: 0.25 MG;PO
     Route: 048
     Dates: start: 20060901
  2. PERCISION [Concomitant]
  3. TUSSTONEX [Concomitant]
  4. CLOTRIM/BETA DIPROP [Concomitant]
  5. GLIPIZIDE [Concomitant]
  6. TEMAZEPAM [Concomitant]
  7. AVANDIA [Concomitant]
  8. LOTREL [Concomitant]
  9. ACTOS [Concomitant]
  10. TAZTIA [Concomitant]
  11. PROPAFENONE HCL [Concomitant]
  12. LEVAQUIN [Concomitant]
  13. NAPROXEN [Concomitant]
  14. PROCHELORPER [Concomitant]

REACTIONS (2)
  - ECONOMIC PROBLEM [None]
  - INJURY [None]
